FAERS Safety Report 16249894 (Version 1)
Quarter: 2019Q2

REPORT INFORMATION
  Report Type: Spontaneous
  Country: SK (occurrence: SK)
  Receive Date: 20190429
  Receipt Date: 20190429
  Transmission Date: 20190711
  Serious: Yes (Death, Other)
  Sender: FDA-Public Use
  Company Number: SK-TAIHO ONCOLOGY  INC-IM-2019-00207

PATIENT
  Age: 72 Year
  Sex: Female

DRUGS (1)
  1. LONSURF [Suspect]
     Active Substance: TIPIRACIL HYDROCHLORIDE\TRIFLURIDINE
     Indication: COLON CANCER
     Dosage: UNK
     Route: 048
     Dates: start: 201709, end: 201806

REACTIONS (4)
  - Neutropenia [Unknown]
  - Disease progression [Fatal]
  - Thrombocytopenia [Unknown]
  - Weight decreased [Unknown]

NARRATIVE: CASE EVENT DATE: 2017
